FAERS Safety Report 6863445-6 (Version None)
Quarter: 2010Q3

REPORT INFORMATION
  Report Type: 
  Country: None (occurrence: None)
  Receive Date: 20100721
  Receipt Date: 20100709
  Transmission Date: 20110219
  Serious: Yes (Other)
  Sender: FDA-Public Use
  Company Number: DE-PFIZER INC-2010084640

PATIENT
  Age: 46 Year
  Sex: Female

DRUGS (2)
  1. LYRICA [Suspect]
     Indication: NEURALGIA
     Dosage: 50 MG IN MORNING, 75 MG IN EVENING
  2. CARBAMAZEPINE [Suspect]
     Dosage: UNK

REACTIONS (1)
  - MYOCARDITIS [None]
